FAERS Safety Report 9942804 (Version 1)
Quarter: 2014Q1

REPORT INFORMATION
  Report Type: Report from Study
  Country: US (occurrence: US)
  Receive Date: 20140303
  Receipt Date: 20140303
  Transmission Date: 20141002
  Serious: No
  Sender: FDA-Public Use
  Company Number: US-ABBVIE-13P-163-1045304-00

PATIENT
  Sex: Male
  Weight: 73.55 kg

DRUGS (2)
  1. HUMIRA [Suspect]
     Indication: PULMONARY SARCOIDOSIS
     Route: 058
     Dates: start: 201011, end: 201212
  2. HUMIRA [Suspect]
     Route: 058
     Dates: start: 201212

REACTIONS (5)
  - Off label use [Unknown]
  - Medication error [Unknown]
  - Inappropriate schedule of drug administration [Unknown]
  - Therapeutic response unexpected [Unknown]
  - Therapeutic response unexpected [Unknown]
